FAERS Safety Report 8406140-4 (Version None)
Quarter: 2012Q2

REPORT INFORMATION
  Report Type: 
  Country: None (occurrence: None)
  Receive Date: 20120529
  Receipt Date: 20000321
  Transmission Date: 20120825
  Serious: Yes (Death, Hospitalization)
  Sender: FDA-Public Use
  Company Number: 02100-JPN-00-0016

PATIENT
  Age: 83 Year
  Sex: Female
  Weight: 45 kg

DRUGS (11)
  1. SARPUL (ANIRACETAM) [Suspect]
  2. PLETAL [Suspect]
     Indication: CEREBRAL THROMBOSIS
     Dosage: 100 MG, BID, ORAL
     Route: 048
     Dates: start: 20000219, end: 20000313
  3. PLETAL [Suspect]
     Indication: PROPHYLAXIS
     Dosage: 100 MG, BID, ORAL
     Route: 048
     Dates: start: 20000219, end: 20000313
  4. LOXONIN (LOXOPROFEN SODIUM) [Suspect]
  5. TICLOPIDINE HCL [Suspect]
     Indication: CEREBRAL THROMBOSIS
     Dosage: 100 MG, BID, ORAL
     Route: 048
     Dates: start: 20000214, end: 20000313
  6. TICLOPIDINE HCL [Suspect]
     Indication: PROPHYLAXIS
     Dosage: 100 MG, BID, ORAL
     Route: 048
     Dates: start: 20000214, end: 20000313
  7. FLOMOX (CEFCAPENE PIVOXIL HYDROCHLORIDE) [Concomitant]
  8. NAUZELIN (DOMPERIDONE) [Concomitant]
  9. CATACLOT (OZAGREL SODIUM) [Concomitant]
  10. ZANTAC [Concomitant]
  11. MUCOSTA (REBAMIPIDE) [Concomitant]

REACTIONS (7)
  - RESPIRATORY FAILURE [None]
  - HEPATOBILIARY DISEASE [None]
  - FEMUR FRACTURE [None]
  - ANAEMIA [None]
  - PNEUMONIA [None]
  - JAUNDICE [None]
  - FALL [None]
